FAERS Safety Report 5940442-6 (Version None)
Quarter: 2008Q4

REPORT INFORMATION
  Report Type: 
  Country: None (occurrence: None)
  Receive Date: 20081104
  Receipt Date: 20081030
  Transmission Date: 20090506
  Serious: Yes (Death)
  Sender: FDA-Public Use
  Company Number: US-EISAI MEDICAL RESEARCH-E7867-00013-SPO-US

PATIENT
  Sex: Female

DRUGS (4)
  1. GLIADEL [Suspect]
     Indication: GLIOBLASTOMA MULTIFORME
     Route: 018
     Dates: start: 20070101
  2. BEVACIZUMAB [Suspect]
     Indication: GLIOBLASTOMA MULTIFORME
     Dosage: UNKNOWN
     Route: 065
     Dates: start: 20070101
  3. TEMODAR [Concomitant]
     Indication: GLIOBLASTOMA MULTIFORME
  4. IRINOTECAN HYDROCHLORIDE [Concomitant]
     Indication: GLIOBLASTOMA MULTIFORME
     Dates: start: 20070101

REACTIONS (2)
  - INFECTION [None]
  - INTRACRANIAL HYPOTENSION [None]
